FAERS Safety Report 10151453 (Version 2)
Quarter: 2014Q2

REPORT INFORMATION
  Report Type: Other
  Country: US (occurrence: US)
  Receive Date: 20140504
  Receipt Date: 20140504
  Transmission Date: 20141212
  Serious: Yes (Hospitalization)
  Sender: FDA-Public Use
  Company Number: US-BRISTOL-MYERS SQUIBB COMPANY-20669974

PATIENT
  Age: 23 Day
  Sex: Female
  Weight: 2.78 kg

DRUGS (2)
  1. ETOPOSIDE [Suspect]
     Indication: NEONATAL NEUROBLASTOMA
     Route: 042
  2. CARBOPLATIN [Suspect]
     Indication: NEONATAL NEUROBLASTOMA
     Route: 042

REACTIONS (1)
  - Tumour lysis syndrome [Unknown]
